FAERS Safety Report 15399141 (Version 1)
Quarter: 2018Q3

REPORT INFORMATION
  Report Type: Spontaneous
  Country: GB (occurrence: GB)
  Receive Date: 20180918
  Receipt Date: 20180918
  Transmission Date: 20181010
  Serious: Yes (Life-Threatening, Other)
  Sender: FDA-Public Use
  Company Number: GB-PFIZER INC-2018371948

PATIENT
  Age: 35 Year
  Sex: Female
  Weight: 109.31 kg

DRUGS (14)
  1. BUTRANS [Concomitant]
     Active Substance: BUPRENORPHINE
     Dosage: 5 MG, UNK
     Route: 062
  2. AMITRIPTYLINE [Concomitant]
     Active Substance: AMITRIPTYLINE
     Dosage: WITHDRAWN
  3. NARATRIPTAN HYDROCHLORIDE. [Concomitant]
     Active Substance: NARATRIPTAN HYDROCHLORIDE
  4. BECLOMETASONE DIPROPIONATE [Concomitant]
     Active Substance: BECLOMETHASONE DIPROPIONATE
  5. LORATADINE. [Concomitant]
     Active Substance: LORATADINE
  6. DICLOFENAC DIETHYLAMINE [Concomitant]
     Active Substance: DICLOFENAC DIETHYLAMINE
  7. RANITIDINE. [Concomitant]
     Active Substance: RANITIDINE
  8. SALBUTAMOL [Concomitant]
     Active Substance: ALBUTEROL
  9. PARACETAMOL [Concomitant]
     Active Substance: ACETAMINOPHEN
  10. MAGNESIUM [Concomitant]
     Active Substance: MAGNESIUM
  11. LANSOPRAZOLE. [Concomitant]
     Active Substance: LANSOPRAZOLE
  12. TOPIRAMATE. [Concomitant]
     Active Substance: TOPIRAMATE
  13. PREGABALIN. [Suspect]
     Active Substance: PREGABALIN
     Indication: PAIN
     Dosage: 50 MG, UNK
     Route: 048
     Dates: start: 20180710
  14. ORAMORPH [Concomitant]
     Active Substance: MORPHINE SULFATE

REACTIONS (3)
  - Suicidal ideation [Recovering/Resolving]
  - Mental impairment [Unknown]
  - Depression [Unknown]

NARRATIVE: CASE EVENT DATE: 20180808
